FAERS Safety Report 5689181-X (Version None)
Quarter: 2008Q1

REPORT INFORMATION
  Report Type: 
  Country: None (occurrence: None)
  Receive Date: 20080331
  Receipt Date: 20080318
  Transmission Date: 20080703
  Serious: Yes (Hospitalization)
  Sender: FDA-Public Use
  Company Number: CA-KINGPHARMUSA00001-K200800347

PATIENT

DRUGS (5)
  1. CYTOMEL [Suspect]
     Indication: THYROID DISORDER
     Dosage: 25 MCG, QD
     Route: 048
     Dates: start: 20060101, end: 20060301
  2. CYTOMEL [Suspect]
     Dosage: 25 MCG, 1 TAB IN AM AND 1/2 TAB IN PM
     Route: 048
     Dates: start: 20070101
  3. CYTOMEL [Suspect]
     Dosage: 25 MCG, QD
     Route: 048
  4. SYNTHROID [Suspect]
     Dosage: 75 MG, QD
     Route: 048
     Dates: start: 20070101
  5. NOVOHYDRAZIDE [Concomitant]
     Indication: BLOOD PRESSURE
     Dosage: 25 MG, QD
     Route: 048

REACTIONS (6)
  - BLOOD THYROID STIMULATING HORMONE DECREASED [None]
  - DRUG LEVEL FLUCTUATING [None]
  - DRUG LEVEL INCREASED [None]
  - HYPOTHYROIDISM [None]
  - THYROID CANCER [None]
  - TRI-IODOTHYRONINE FREE INCREASED [None]
